FAERS Safety Report 12587455 (Version 2)
Quarter: 2016Q3

REPORT INFORMATION
  Report Type: Report from Study
  Country: CO (occurrence: CO)
  Receive Date: 20160725
  Receipt Date: 20160809
  Transmission Date: 20161109
  Serious: Yes (Other)
  Sender: FDA-Public Use
  Company Number: PHHY2015CO159067

PATIENT
  Age: 72 Year
  Sex: Male
  Weight: 97 kg

DRUGS (3)
  1. TASIGNA [Suspect]
     Active Substance: NILOTINIB
     Indication: CHRONIC MYELOID LEUKAEMIA
     Dosage: 150 MG, QID
     Route: 048
     Dates: start: 20130530, end: 201601
  2. TASIGNA [Suspect]
     Active Substance: NILOTINIB
     Dosage: 150 MG, QID
     Route: 048
     Dates: start: 20160617
  3. OMEPRAZOLE. [Concomitant]
     Active Substance: OMEPRAZOLE
     Indication: GASTROINTESTINAL DISORDER
     Dosage: ONCE DAILY
     Route: 065

REACTIONS (18)
  - Loss of consciousness [Unknown]
  - Malaise [Unknown]
  - Cholelithiasis [Unknown]
  - Headache [Unknown]
  - Eye pain [Unknown]
  - Condition aggravated [Unknown]
  - Drug intolerance [Unknown]
  - Pyrexia [Unknown]
  - Pain in extremity [Unknown]
  - Vomiting [Unknown]
  - Mouth haemorrhage [Unknown]
  - Alcohol poisoning [Unknown]
  - Splenomegaly [Unknown]
  - Haematemesis [Unknown]
  - Peripheral swelling [Unknown]
  - Pain [Unknown]
  - Incorrect drug administration duration [Unknown]
  - Abdominal pain [Unknown]

NARRATIVE: CASE EVENT DATE: 20151015
